FAERS Safety Report 21964054 (Version 3)
Quarter: 2023Q1

REPORT INFORMATION
  Report Type: Report from Study
  Country: AR (occurrence: AR)
  Receive Date: 20230207
  Receipt Date: 20230315
  Transmission Date: 20230418
  Serious: Yes (Death, Hospitalization)
  Sender: FDA-Public Use
  Company Number: AR-AMGEN-ARGCT2022226902

PATIENT
  Age: 83 Year
  Sex: Male
  Weight: 72 kg

DRUGS (13)
  1. SOTORASIB [Suspect]
     Active Substance: SOTORASIB
     Indication: Non-small cell lung cancer stage IV
     Dosage: 960 MILLIGRAM
     Route: 048
     Dates: start: 20220922, end: 20221216
  2. SOTORASIB [Suspect]
     Active Substance: SOTORASIB
     Indication: K-ras gene mutation
  3. ENALAPRIL [Concomitant]
     Active Substance: ENALAPRIL
     Dosage: 5 MILLIGRAM
     Route: 048
     Dates: start: 20020601, end: 20230108
  4. LOPERAMIDE [Concomitant]
     Active Substance: LOPERAMIDE
     Dosage: 2 MILLIGRAM
     Route: 048
     Dates: start: 20221007, end: 20230108
  5. ENSURE [Concomitant]
     Active Substance: AMINO ACIDS\DEXTROSE\ELECTROLYTES NOS\SOYBEAN OIL\VITAMINS
     Dosage: 200 MILLILITER
     Route: 048
     Dates: start: 20221215, end: 20230108
  6. POTASSIUM CHLORIDE [Concomitant]
     Active Substance: POTASSIUM CHLORIDE
     Dosage: 600 MILLIGRAM
     Route: 048
     Dates: start: 20221215, end: 20230108
  7. CYPROHEPTADINE [Concomitant]
     Active Substance: CYPROHEPTADINE
     Dosage: 2 MILLIGRAM
     Route: 048
     Dates: start: 20221222, end: 20230108
  8. CALCIUM PHOSPHATE [Concomitant]
     Active Substance: CALCIUM PHOSPHATE
     Dosage: 250 MILLIGRAM
     Route: 048
     Dates: start: 20221222, end: 20230108
  9. Pharmaton [Concomitant]
     Dosage: 750 MILLIGRAM
     Route: 048
     Dates: start: 20221222, end: 20230108
  10. GLYCOPYRRONIUM [Concomitant]
     Active Substance: GLYCOPYRRONIUM
     Dosage: 8.3 MICROGRAM
     Route: 048
     Dates: start: 20211001, end: 20230108
  11. FORMOTEROL [Concomitant]
     Active Substance: FORMOTEROL
     Dosage: 5.8 MICROGRAM
     Route: 048
     Dates: start: 20211001, end: 20230108
  12. IBUPROFEN [Concomitant]
     Active Substance: IBUPROFEN
     Dosage: 400 MILLIGRAM
     Route: 048
     Dates: start: 20220927, end: 20230108
  13. MEPREDNISONE [Concomitant]
     Active Substance: MEPREDNISONE
     Dosage: UNK
     Route: 048
     Dates: start: 20221201, end: 20230108

REACTIONS (1)
  - Decreased appetite [Fatal]

NARRATIVE: CASE EVENT DATE: 20221229
